FAERS Safety Report 12329139 (Version 1)
Quarter: 2016Q2

REPORT INFORMATION
  Report Type: Report from Study
  Country: US (occurrence: US)
  Receive Date: 20160503
  Receipt Date: 20160503
  Transmission Date: 20160815
  Serious: Yes (Death)
  Sender: FDA-Public Use
  Company Number: US-PFIZER INC-2016236924

PATIENT
  Age: 56 Year
  Sex: Male

DRUGS (8)
  1. TACROLIMUS. [Concomitant]
     Active Substance: TACROLIMUS
     Indication: ACUTE GRAFT VERSUS HOST DISEASE
     Dosage: UNK
  2. MINOCYCLINE [Suspect]
     Active Substance: MINOCYCLINE\MINOCYCLINE HYDROCHLORIDE
     Indication: NOCARDIOSIS
     Dosage: UNK
  3. MEROPENEM. [Suspect]
     Active Substance: MEROPENEM
     Indication: NOCARDIOSIS
     Dosage: UNK
  4. PREDNISONE. [Concomitant]
     Active Substance: PREDNISONE
     Indication: ACUTE GRAFT VERSUS HOST DISEASE
     Dosage: UNK
  5. PENTAMIDINE [Concomitant]
     Active Substance: PENTAMIDINE
     Indication: ANTIFUNGAL PROPHYLAXIS
     Dosage: UNK
  6. SULFAMETHOXAZOLE/TRIMETHOPRIM [Suspect]
     Active Substance: SULFAMETHOXAZOLE\TRIMETHOPRIM
     Indication: NOCARDIOSIS
     Dosage: UNK
  7. SULFAMETHOXAZOLE/TRIMETHOPRIM [Suspect]
     Active Substance: SULFAMETHOXAZOLE\TRIMETHOPRIM
     Dosage: UNK
  8. MEROPENEM. [Suspect]
     Active Substance: MEROPENEM
     Dosage: UNK

REACTIONS (2)
  - Nocardiosis [Fatal]
  - Drug ineffective [Fatal]
